FAERS Safety Report 5338399-4 (Version None)
Quarter: 2007Q2

REPORT INFORMATION
  Report Type: 
  Country: None (occurrence: None)
  Receive Date: 20070530
  Receipt Date: 20070521
  Transmission Date: 20071010
  Serious: No
  Sender: FDA-Public Use
  Company Number: US-ELI_LILLY_AND_COMPANY-US200704001128

PATIENT
  Age: 59 Year
  Sex: Female

DRUGS (13)
  1. CRANBERRY [Concomitant]
     Dosage: 1 D/F, DAILY (1/D)
     Route: 048
     Dates: start: 20060919
  2. GLUCOSAMINE [Concomitant]
     Dosage: 1 D/F, DAILY (1/D)
     Route: 048
     Dates: start: 20060919
  3. COENZYME Q10 [Concomitant]
     Dosage: 1 D/F, DAILY (1/D)
     Dates: start: 20060919
  4. AMBIEN [Concomitant]
     Dosage: 12.5 MG, EACH EVENING
     Route: 048
     Dates: start: 20060919
  5. LORTAB [Concomitant]
     Dosage: 1 D/F, AS NEEDED
     Route: 048
     Dates: start: 20060919
  6. ZOCOR [Concomitant]
     Dosage: 40 MG, EACH EVENING
     Route: 048
     Dates: end: 20061218
  7. GLYBURIDE [Concomitant]
     Dosage: 10 MG, EACH EVENING
     Route: 048
     Dates: end: 20060919
  8. GLYBURIDE [Concomitant]
     Dosage: 5 MG, EACH MORNING
     Route: 048
     Dates: end: 20060919
  9. STARLIX [Concomitant]
     Dosage: 120 MG, UNKNOWN
     Route: 048
     Dates: end: 20060919
  10. BYETTA [Suspect]
     Indication: DIABETES MELLITUS NON-INSULIN-DEPENDENT
     Dosage: 5 UG, 2/D
     Route: 058
     Dates: start: 20060919, end: 20061017
  11. BYETTA [Suspect]
     Dosage: 10 UG, 2/D
     Route: 058
     Dates: start: 20061017
  12. LANTUS [Concomitant]
     Dosage: 67 U, EACH EVENING
     Route: 058
     Dates: start: 20061017
  13. BENICAR [Concomitant]
     Dosage: 40 MG, EACH EVENING
     Route: 048
     Dates: start: 20060919

REACTIONS (5)
  - BLOOD GLUCOSE DECREASED [None]
  - BLOOD GLUCOSE INCREASED [None]
  - NAUSEA [None]
  - SLEEP APNOEA SYNDROME [None]
  - VOMITING [None]
